FAERS Safety Report 5837978-5 (Version None)
Quarter: 2008Q3

REPORT INFORMATION
  Report Type: 
  Country: None (occurrence: None)
  Receive Date: 20080808
  Receipt Date: 20080114
  Transmission Date: 20090109
  Serious: No
  Sender: FDA-Public Use
  Company Number: A0703019A

PATIENT
  Sex: Male

DRUGS (2)
  1. PAROXETINE HCL [Suspect]
     Indication: DEPRESSION
     Route: 048
     Dates: start: 20060101
  2. BLOOD PRESSURE MEDICATION [Concomitant]

REACTIONS (3)
  - EJACULATION DISORDER [None]
  - ERECTILE DYSFUNCTION [None]
  - YAWNING [None]
